FAERS Safety Report 7921975-X (Version None)
Quarter: 2011Q4

REPORT INFORMATION
  Report Type: 
  Country: None (occurrence: None)
  Receive Date: 20111117
  Receipt Date: 20111109
  Transmission Date: 20120403
  Serious: Yes (Other)
  Sender: FDA-Public Use
  Company Number: US-RB-031491-11

PATIENT
  Age: 41 Year
  Sex: Female

DRUGS (3)
  1. SUBOXONE [Suspect]
     Dosage: TAPERED FROM 16 MG DAILY TO 4 MG DAILY
     Route: 060
     Dates: start: 20110804, end: 20110812
  2. SUBOXONE [Suspect]
     Route: 060
     Dates: start: 20080101, end: 20110803
  3. SUBOXONE [Suspect]
     Indication: DRUG DEPENDENCE
     Route: 060
     Dates: start: 20110801

REACTIONS (3)
  - SKIN LESION [None]
  - MALIGNANT MELANOMA [None]
  - DRUG WITHDRAWAL SYNDROME [None]
